FAERS Safety Report 10063405 (Version 2)
Quarter: 2014Q2

REPORT INFORMATION
  Report Type: Spontaneous
  Country: US (occurrence: US)
  Receive Date: 20140407
  Receipt Date: 20140407
  Transmission Date: 20141212
  Serious: Yes (Death, Other)
  Sender: FDA-Public Use
  Company Number: US-TAKEDA-TPA2012A03269

PATIENT
  Sex: 0

DRUGS (4)
  1. ACTOS [Suspect]
     Indication: TYPE 2 DIABETES MELLITUS
     Dosage: 30 MG, UNK
     Dates: start: 20090617, end: 20120420
  2. AMARYL [Concomitant]
     Dosage: UNK
     Dates: start: 2012
  3. JANUMET [Concomitant]
     Dosage: UNK
     Dates: start: 2010
  4. AVANDAMET [Concomitant]
     Dosage: UNK
     Dates: start: 2008

REACTIONS (2)
  - Bladder cancer recurrent [Fatal]
  - Nephropathy [Fatal]
